FAERS Safety Report 16469600 (Version 1)
Quarter: 2019Q2

REPORT INFORMATION
  Report Type: Spontaneous
  Country: US (occurrence: US)
  Receive Date: 20190624
  Receipt Date: 20190624
  Transmission Date: 20190711
  Serious: No
  Sender: FDA-Public Use
  Company Number: US-TEVA-2019-US-1058651

PATIENT
  Sex: Female

DRUGS (3)
  1. NORETHINDRONE. [Suspect]
     Active Substance: NORETHINDRONE
  2. NORETHINDRONE. [Suspect]
     Active Substance: NORETHINDRONE
     Dosage: ONE YEAR AGO
     Route: 065
  3. NORETHINDRONE. [Suspect]
     Active Substance: NORETHINDRONE
     Indication: AMENORRHOEA
     Dates: start: 20190516, end: 20190521

REACTIONS (5)
  - Nausea [Unknown]
  - Abdominal pain upper [Unknown]
  - Abdominal distension [Unknown]
  - Feeding disorder [Unknown]
  - Drug ineffective [Unknown]

NARRATIVE: CASE EVENT DATE: 20190518
